FAERS Safety Report 11107131 (Version 1)
Quarter: 2015Q2

REPORT INFORMATION
  Report Type: Spontaneous
  Country: US (occurrence: US)
  Receive Date: 20150512
  Receipt Date: 20150512
  Transmission Date: 20150821
  Serious: No
  Sender: FDA-Public Use
  Company Number: US-BAUSCH-BL-2015-003118

PATIENT
  Age: 78 Year
  Sex: Female

DRUGS (1)
  1. LATANOPROST OPHTHALMIC SOLUTION 0.005% [Suspect]
     Active Substance: LATANOPROST
     Indication: PRODUCT USED FOR UNKNOWN INDICATION
     Dosage: 1 DROP, BOTH EYES, AT BEDTIME
     Route: 047
     Dates: start: 201501, end: 201501

REACTIONS (1)
  - Eye burns [Recovered/Resolved]

NARRATIVE: CASE EVENT DATE: 201501
